FAERS Safety Report 6622147-1 (Version None)
Quarter: 2010Q1

REPORT INFORMATION
  Report Type: 
  Country: None (occurrence: None)
  Receive Date: 20100309
  Receipt Date: 20100225
  Transmission Date: 20100710
  Serious: Yes (Hospitalization, Other)
  Sender: FDA-Public Use
  Company Number: IE-BRISTOL-MYERS SQUIBB COMPANY-14821391

PATIENT
  Age: 84 Year
  Sex: Female

DRUGS (6)
  1. ABILIFY [Suspect]
     Indication: HALLUCINATION, AUDITORY
     Dosage: DOSE INCREASED FROM 45MG TO 60MG
     Route: 048
  2. RISPERIDONE [Concomitant]
  3. BETALOC [Concomitant]
     Route: 048
  4. OMEPRAZOLE [Concomitant]
     Route: 048
     Dates: start: 20091023
  5. ATIVAN [Concomitant]
     Indication: ANXIETY
     Dosage: REDUCED TO 0.5 MG/BID
     Dates: start: 20091023, end: 20091110
  6. BONIVA [Concomitant]
     Indication: OSTEOPOROSIS
     Route: 048
     Dates: start: 20091023

REACTIONS (2)
  - DRUG INEFFECTIVE [None]
  - HALLUCINATION, AUDITORY [None]
